FAERS Safety Report 7932914-X (Version None)
Quarter: 2011Q4

REPORT INFORMATION
  Report Type: 
  Country: None (occurrence: None)
  Receive Date: 20111122
  Receipt Date: 20111117
  Transmission Date: 20120403
  Serious: No
  Sender: FDA-Public Use
  Company Number: US-PFIZER INC-2011276981

PATIENT
  Sex: Female
  Weight: 62.585 kg

DRUGS (2)
  1. PROPRANOLOL [Concomitant]
     Dosage: UNK
  2. NARDIL [Suspect]
     Indication: ANTIDEPRESSANT THERAPY
     Dosage: 15 MG, 2X/DAY
     Route: 048

REACTIONS (1)
  - DRUG INEFFECTIVE [None]
